FAERS Safety Report 4969541-2 (Version None)
Quarter: 2006Q2

REPORT INFORMATION
  Report Type: 
  Country: None (occurrence: None)
  Receive Date: 20060406
  Receipt Date: 20060327
  Transmission Date: 20061013
  Serious: Yes (Death, Hospitalization)
  Sender: FDA-Public Use
  Company Number: M-06-0278

PATIENT
  Age: 72 Year
  Sex: Male

DRUGS (1)
  1. PACERONE, UNK STRENGTH, (USL) [Suspect]
     Indication: ATRIAL FIBRILLATION
     Dosage: PO
     Route: 048
     Dates: start: 20050501, end: 20051101

REACTIONS (12)
  - ASPIRATION [None]
  - ATRIAL FIBRILLATION [None]
  - DRUG TOXICITY [None]
  - HYPOTENSION [None]
  - ILEUS [None]
  - INFLAMMATION [None]
  - INTERSTITIAL LUNG DISEASE [None]
  - LOSS OF CONSCIOUSNESS [None]
  - NOSOCOMIAL INFECTION [None]
  - PULMONARY TOXICITY [None]
  - RESPIRATORY FAILURE [None]
  - SEPSIS [None]
